FAERS Safety Report 8442038-3 (Version None)
Quarter: 2012Q2

REPORT INFORMATION
  Report Type: 
  Country: None (occurrence: None)
  Receive Date: 20120615
  Receipt Date: 20120607
  Transmission Date: 20120825
  Serious: Yes (Hospitalization)
  Sender: FDA-Public Use
  Company Number: US-BAYER-2012-009584

PATIENT
  Age: 36 Year
  Sex: Female
  Weight: 93.424 kg

DRUGS (4)
  1. BISMUTH SUBSALICYLATE [Concomitant]
     Dosage: UNK
     Route: 048
     Dates: start: 20051127
  2. HYDROCHLOROTHIAZIDE [Concomitant]
     Indication: BLOOD PRESSURE MANAGEMENT
     Dosage: 25 MG, UNK
     Route: 048
  3. KENALOG [Concomitant]
     Dosage: 1 %, UNK
     Route: 061
     Dates: start: 20050927
  4. YASMIN [Suspect]
     Indication: CONTRACEPTION
     Dosage: UNK
     Dates: start: 20030401, end: 20050101

REACTIONS (4)
  - CHOLECYSTITIS CHRONIC [None]
  - INJURY [None]
  - CHOLELITHIASIS [None]
  - ABDOMINAL PAIN [None]
